FAERS Safety Report 6975764-3 (Version None)
Quarter: 2010Q3

REPORT INFORMATION
  Report Type: 
  Country: None (occurrence: None)
  Receive Date: 20100910
  Receipt Date: 20090326
  Transmission Date: 20110219
  Serious: No
  Sender: FDA-Public Use
  Company Number: US-WYE-H08734909

PATIENT
  Sex: Female
  Weight: 119.4 kg

DRUGS (1)
  1. LYBREL [Suspect]
     Indication: ORAL CONTRACEPTION
     Route: 048
     Dates: start: 20080901

REACTIONS (2)
  - DRUG DOSE OMISSION [None]
  - VAGINAL HAEMORRHAGE [None]
